FAERS Safety Report 5583906-X (Version None)
Quarter: 2008Q1

REPORT INFORMATION
  Report Type: 
  Country: None (occurrence: None)
  Receive Date: 20080102
  Receipt Date: 20080102
  Transmission Date: 20080703
  Serious: Yes (Other)
  Sender: FDA-Public Use
  Company Number: None

PATIENT
  Age: 53 Year
  Sex: Male
  Weight: 118.8424 kg

DRUGS (1)
  1. VARENICLINE TARTRATE 1MG PHIZER [Suspect]
     Indication: SMOKING CESSATION THERAPY
     Dosage: 1    2 TIMES A DAY PO
     Route: 048
     Dates: start: 20070927, end: 20071211

REACTIONS (3)
  - HOMICIDAL IDEATION [None]
  - IRRITABILITY [None]
  - SUICIDAL IDEATION [None]
